FAERS Safety Report 16668922 (Version 4)
Quarter: 2020Q2

REPORT INFORMATION
  Report Type: Spontaneous
  Country: DK (occurrence: DK)
  Receive Date: 20190805
  Receipt Date: 20200624
  Transmission Date: 20200713
  Serious: Yes (Death, Congenital Anomaly)
  Sender: FDA-Public Use
  Company Number: DK-PFIZER INC-2019300665

PATIENT
  Sex: Female

DRUGS (9)
  1. INFLECTRA [Suspect]
     Active Substance: INFLIXIMAB-DYYB
     Dosage: 320 MG, EVERY 6 WEEKS
     Route: 064
     Dates: start: 20190320, end: 20190320
  2. INFLECTRA [Suspect]
     Active Substance: INFLIXIMAB-DYYB
     Dosage: 320 MG, EVERY 6 WEEKS
     Route: 064
     Dates: start: 20181227, end: 20181227
  3. QUESTRAN [Concomitant]
     Active Substance: CHOLESTYRAMINE
     Indication: DIARRHOEA
     Dosage: 4 G, 1X/DAY
     Route: 064
     Dates: start: 20170702
  4. INFLECTRA [Suspect]
     Active Substance: INFLIXIMAB-DYYB
     Dosage: 320 MG, EVERY 6 WEEKS
     Route: 064
     Dates: start: 20190207, end: 20190207
  5. ZESSLY [Suspect]
     Active Substance: INFLIXIMAB
     Dosage: 320 MG, UNK (QW61D)
     Route: 064
     Dates: start: 20190508
  6. PARACETAMOL [Concomitant]
     Active Substance: ACETAMINOPHEN
     Indication: PAIN
     Dosage: 1000 MG, AS NEEDED (MAXIMUM 4 TIMES DAILY)
     Route: 064
     Dates: start: 20180217
  7. CYANOCOBALAMIN. [Concomitant]
     Active Substance: CYANOCOBALAMIN
     Indication: VITAMIN SUPPLEMENTATION
     Dosage: 1 MG, 1X/DAY
     Route: 064
     Dates: start: 20170908
  8. DERMOVAT [CLOBETASOL PROPIONATE] [Concomitant]
     Indication: SKIN DISORDER
     Dosage: UNK UNK, AS NEEDED
     Route: 064
     Dates: start: 20181206
  9. INFLECTRA [Suspect]
     Active Substance: INFLIXIMAB-DYYB
     Indication: CROHN^S DISEASE
     Dosage: 320 MG, EVERY 6 WEEKS
     Route: 064
     Dates: start: 2016

REACTIONS (4)
  - Premature baby [Fatal]
  - Foetal malformation [Fatal]
  - Foetal chromosome abnormality [Fatal]
  - Maternal exposure during pregnancy [Fatal]

NARRATIVE: CASE EVENT DATE: 201901
